FAERS Safety Report 6816193-2 (Version None)
Quarter: 2010Q3

REPORT INFORMATION
  Report Type: 
  Country: None (occurrence: None)
  Receive Date: 20100702
  Receipt Date: 20100702
  Transmission Date: 20110219
  Serious: Yes (Life-Threatening, Hospitalization)
  Sender: FDA-Public Use
  Company Number: None

PATIENT
  Age: 17 Year
  Sex: Female
  Weight: 90.7194 kg

DRUGS (1)
  1. YAZ [Suspect]
     Indication: ACNE
     Dosage: 1 PILL DAILY
     Dates: start: 20070219, end: 20070525

REACTIONS (1)
  - PULMONARY EMBOLISM [None]
